FAERS Safety Report 4866536-4 (Version None)
Quarter: 2005Q4

REPORT INFORMATION
  Report Type: 
  Country: None (occurrence: None)
  Receive Date: 20051227
  Receipt Date: 20051215
  Transmission Date: 20060501
  Serious: Yes (Other)
  Sender: FDA-Public Use
  Company Number: CA-JNJFOC-20051204850

PATIENT
  Sex: Female

DRUGS (8)
  1. TYLENOL (CAPLET) [Suspect]
     Route: 048
     Dates: start: 19940101, end: 19980101
  2. TYLENOL (CAPLET) [Suspect]
     Route: 048
     Dates: start: 19940101, end: 19980101
  3. EXTRA STRENGTH TYLENOL [Suspect]
     Route: 048
     Dates: start: 19940101, end: 19980101
  4. EXTRA STRENGTH TYLENOL [Suspect]
     Route: 048
     Dates: start: 19940101, end: 19980101
  5. TYLENOL W/ CODEINE NO. 3 [Suspect]
     Route: 048
     Dates: start: 19940101, end: 19980101
  6. ZANTAC [Concomitant]
  7. GRAVOL TAB [Concomitant]
  8. SLEEPING PILL [Concomitant]

REACTIONS (2)
  - GASTROINTESTINAL INJURY [None]
  - HEPATOCELLULAR DAMAGE [None]
